FAERS Safety Report 5402619-8 (Version None)
Quarter: 2007Q3

REPORT INFORMATION
  Report Type: 
  Country: None (occurrence: None)
  Receive Date: 20070801
  Receipt Date: 20070302
  Transmission Date: 20080115
  Serious: No
  Sender: FDA-Public Use
  Company Number: A0641621A

PATIENT
  Sex: Female

DRUGS (11)
  1. IMITREX [Suspect]
     Indication: MIGRAINE
     Dosage: 100MG VARIABLE DOSE
     Route: 048
  2. IMITREX [Suspect]
     Route: 045
  3. EFFEXOR [Suspect]
     Indication: DRUG USE FOR UNKNOWN INDICATION
     Dosage: 225MG PER DAY
     Route: 065
  4. WELLBUTRIN SR [Concomitant]
  5. ATENOLOL [Concomitant]
  6. XANAX [Concomitant]
  7. DARVOCET [Concomitant]
  8. SOMA [Concomitant]
  9. COMBIVENT [Concomitant]
  10. ADVAIR DISKUS 100/50 [Concomitant]
  11. FLUTICASONE PROPIONATE [Concomitant]

REACTIONS (6)
  - CONFUSIONAL STATE [None]
  - CONSTIPATION [None]
  - DYSARTHRIA [None]
  - HYPOAESTHESIA [None]
  - SOMNOLENCE [None]
  - TREMOR [None]
